FAERS Safety Report 15307096 (Version 6)
Quarter: 2018Q4

REPORT INFORMATION
  Report Type: Spontaneous
  Country: AU (occurrence: AU)
  Receive Date: 20180822
  Receipt Date: 20181126
  Transmission Date: 20190204
  Serious: Yes (Hospitalization, Other)
  Sender: FDA-Public Use
  Company Number: AU-PFIZER INC-2018331280

PATIENT
  Sex: Female
  Weight: 51 kg

DRUGS (3)
  1. GENOTROPIN [Suspect]
     Active Substance: SOMATROPIN
     Indication: GROWTH HORMONE DEFICIENCY
     Dosage: UNK
     Dates: end: 201603
  2. GENOTROPIN [Suspect]
     Active Substance: SOMATROPIN
     Dosage: UNK
     Dates: end: 2018
  3. GENOTROPIN [Suspect]
     Active Substance: SOMATROPIN
     Dosage: LOW DOSE, 0.6 MG, (0.3 ON PURPLE DIAL)
     Dates: start: 2018

REACTIONS (10)
  - Papilloedema [Recovering/Resolving]
  - Headache [Recovering/Resolving]
  - Migraine [Unknown]
  - Loss of consciousness [Unknown]
  - Speech disorder [Unknown]
  - Idiopathic intracranial hypertension [Not Recovered/Not Resolved]
  - Deafness [Unknown]
  - Vomiting [Unknown]
  - Depressed level of consciousness [Not Recovered/Not Resolved]
  - Blindness [Unknown]

NARRATIVE: CASE EVENT DATE: 2016
